FAERS Safety Report 6782832-8 (Version None)
Quarter: 2010Q2

REPORT INFORMATION
  Report Type: 
  Country: None (occurrence: None)
  Receive Date: 20100617
  Receipt Date: 20100601
  Transmission Date: 20101027
  Serious: Yes (Other)
  Sender: FDA-Public Use
  Company Number: 2010SCPR001284

PATIENT
  Age: 37 Year
  Sex: Male

DRUGS (6)
  1. DOXYCYCLINE (DOXYCYCLINE MONOHYDRATE) [Suspect]
     Indication: NEUROSYPHILIS
     Dosage: 200MG, BID, ORAL
     Route: 048
  2. LOPINAVIR [Concomitant]
  3. RITONAVIR (RITONAVIR) [Concomitant]
  4. TENOFOVIR DISOPROXIL FUMARATE [Concomitant]
  5. EMTRICITABINE (EMTRICITABINE) [Concomitant]
  6. BENZATHINE PENICILLIN (BENZATHINE BENZYLPENICILLIN) [Concomitant]

REACTIONS (3)
  - ABDOMINAL PAIN [None]
  - DIZZINESS [None]
  - PHOTOSENSITIVITY REACTION [None]
